FAERS Safety Report 16437183 (Version 1)
Quarter: 2019Q2

REPORT INFORMATION
  Report Type: Spontaneous
  Country: FR (occurrence: FR)
  Receive Date: 20190615
  Receipt Date: 20190615
  Transmission Date: 20190711
  Serious: Yes (Hospitalization)
  Sender: FDA-Public Use
  Company Number: FR-AUROBINDO-AUR-APL-2019-033767

PATIENT

DRUGS (12)
  1. ORBENINE [Concomitant]
     Active Substance: CLOXACILLIN SODIUM
     Indication: SEPSIS
     Dosage: 2 GRAM, EVERY FOUR HOUR
     Route: 042
     Dates: start: 20190312, end: 20190321
  2. RABEPRAZOLE [Concomitant]
     Active Substance: RABEPRAZOLE
     Indication: PROPHYLAXIS
     Dosage: 20 MILLIGRAM, DAILY
     Route: 048
     Dates: end: 20190316
  3. IBUPROFEN. [Concomitant]
     Active Substance: IBUPROFEN
     Indication: PAIN
     Dosage: UNKNOWN
     Route: 048
     Dates: start: 201903, end: 201903
  4. ATENOLOL. [Suspect]
     Active Substance: ATENOLOL
     Indication: CARDIOVASCULAR EVENT PROPHYLAXIS
     Dosage: 100 MILLIGRAM, DAILY
     Route: 048
     Dates: start: 2011, end: 20190316
  5. ATORVASTATIN [Concomitant]
     Active Substance: ATORVASTATIN
     Indication: HYPERCHOLESTEROLAEMIA
     Dosage: 10 MILLIGRAM, DAILY
     Route: 048
     Dates: end: 20190316
  6. ALLOPURINOL. [Concomitant]
     Active Substance: ALLOPURINOL
     Indication: HYPERURICAEMIA
     Dosage: 100 MILLIGRAM, DAILY
     Route: 048
     Dates: end: 20190316
  7. TAVANIC [Concomitant]
     Active Substance: LEVOFLOXACIN
     Indication: SEPSIS
     Dosage: 2 DOSAGE FORM, DAILY
     Route: 042
     Dates: start: 20190312, end: 20190316
  8. LOVENOX [Concomitant]
     Active Substance: ENOXAPARIN SODIUM
     Indication: PROPHYLAXIS
     Dosage: 1 DOSAGE FORM, DAILY
     Route: 058
     Dates: start: 201903
  9. ASPIRINE PROTECT [Concomitant]
     Active Substance: ASPIRIN
     Indication: CARDIOVASCULAR EVENT PROPHYLAXIS
     Dosage: 1 DOSAGE FORM, DAILY
     Route: 048
     Dates: end: 20190316
  10. HYDROCHLOROTHIAZIDE. [Suspect]
     Active Substance: HYDROCHLOROTHIAZIDE
     Indication: HYPERTENSION
     Dosage: 25 MILLIGRAM, DAILY
     Route: 048
     Dates: end: 20190316
  11. IRBESARTAN. [Suspect]
     Active Substance: IRBESARTAN
     Indication: HYPERTENSION
     Dosage: 300 MILLIGRAM, DAILY
     Route: 048
     Dates: end: 20190316
  12. MOXONIDINE [Suspect]
     Active Substance: MOXONIDINE
     Indication: HYPERTENSION
     Dosage: 0.2 MILLIGRAM, DAILY
     Route: 048
     Dates: end: 20190316

REACTIONS (1)
  - Hypotension [Recovered/Resolved]

NARRATIVE: CASE EVENT DATE: 20190316
